FAERS Safety Report 7323312-0 (Version None)
Quarter: 2011Q1

REPORT INFORMATION
  Report Type: 
  Country: None (occurrence: None)
  Receive Date: 20110301
  Receipt Date: 20110217
  Transmission Date: 20110831
  Serious: Yes (Disabling)
  Sender: FDA-Public Use
  Company Number: DK-ASTRAZENECA-2011SE09387

PATIENT
  Age: 41 Year
  Sex: Male
  Weight: 68 kg

DRUGS (3)
  1. FOSAMAX [Concomitant]
  2. ENTOCORT EC [Suspect]
     Indication: COLITIS COLLAGENOUS
     Dosage: 3 MILLIGRAMS. DOSES: 1-3 TABLETS DAILY
     Route: 048
     Dates: start: 20010518, end: 20091101
  3. UNIKALK BASIC [Concomitant]
     Indication: OSTEOPOROSIS
     Route: 048
     Dates: start: 20090801

REACTIONS (1)
  - OSTEOPOROSIS [None]
